FAERS Safety Report 4503027-4 (Version None)
Quarter: 2004Q4

REPORT INFORMATION
  Report Type: 
  Country: None (occurrence: None)
  Receive Date: 20041112
  Receipt Date: 20041026
  Transmission Date: 20050328
  Serious: Yes (Other)
  Sender: FDA-Public Use
  Company Number: DSA_24939_2004

PATIENT
  Age: 39 Year
  Sex: Female

DRUGS (1)
  1. EMESTAR PLUS/ EPROSARTAN PLUS HYDROCHLOROTHIAZIDE [Suspect]
     Indication: HYPERTENSION
     Dosage: PO
     Route: 048
     Dates: start: 20040212, end: 20040213

REACTIONS (4)
  - AGITATION [None]
  - DIZZINESS [None]
  - FLUSHING [None]
  - TACHYCARDIA [None]
